FAERS Safety Report 13906400 (Version 2)
Quarter: 2017Q3

REPORT INFORMATION
  Report Type: Report from Study
  Country: CA (occurrence: CA)
  Receive Date: 20170825
  Receipt Date: 20170907
  Transmission Date: 20171127
  Serious: Yes (Death)
  Sender: FDA-Public Use
  Company Number: CA-HLSUS-2017-CA-000917

PATIENT
  Age: 52 Year
  Sex: Female
  Weight: 165 kg

DRUGS (7)
  1. EFFEXOR [Concomitant]
     Active Substance: VENLAFAXINE HYDROCHLORIDE
     Dosage: 150 MG EVERY MORNING AND 225 MG AT BEDTIME
  2. COGENTIN [Concomitant]
     Active Substance: BENZTROPINE MESYLATE
     Dosage: 2 MG TWICE DAILY
  3. LORAZEPAM. [Concomitant]
     Active Substance: LORAZEPAM
     Dosage: 2 MG DAILY BED TIME AND 2 MG AS NEEDED
  4. PROZAC [Concomitant]
     Active Substance: FLUOXETINE HYDROCHLORIDE
     Dosage: 80 MG EVERY MORNING
  5. SEROQUEL [Concomitant]
     Active Substance: QUETIAPINE FUMARATE
     Dosage: 900 MG AT BEDTIME AND 100 MG WHEN NECESSARY BID
  6. CLOZARIL [Suspect]
     Active Substance: CLOZAPINE
     Indication: SCHIZOAFFECTIVE DISORDER
     Dosage: 250 MG AT BEDTIME
     Route: 048
     Dates: start: 20001207, end: 20170724
  7. RISPERDAL [Concomitant]
     Active Substance: RISPERIDONE
     Dosage: 2 MG EVERY MORNING AND 2 MG AT BEDTIME

REACTIONS (6)
  - Chronic obstructive pulmonary disease [Unknown]
  - Depressed mood [Unknown]
  - Anxiety [Unknown]
  - Myocardial infarction [Fatal]
  - Back pain [Unknown]
  - Influenza [Unknown]
